FAERS Safety Report 21799420 (Version 1)
Quarter: 2022Q4

REPORT INFORMATION
  Report Type: Spontaneous
  Country: JP (occurrence: JP)
  Receive Date: 20221230
  Receipt Date: 20221230
  Transmission Date: 20230112
  Serious: Yes (Other)
  Sender: FDA-Public Use
  Company Number: 22_00021502(0)

PATIENT
  Age: 22 Month
  Sex: Male

DRUGS (3)
  1. DEXMEDETOMIDINE HYDROCHLORIDE [Suspect]
     Active Substance: DEXMEDETOMIDINE HYDROCHLORIDE
     Indication: Sedative therapy
     Dosage: UNKNOWN
     Route: 065
  2. FENTANYL [Suspect]
     Active Substance: FENTANYL
     Indication: Analgesic therapy
     Dosage: UNKNOWN
     Route: 065
  3. MIDAZOLAM [Suspect]
     Active Substance: MIDAZOLAM
     Indication: Sedative therapy
     Dosage: UNKNOWN
     Route: 065

REACTIONS (2)
  - Withdrawal syndrome [Recovering/Resolving]
  - Delayed recovery from anaesthesia [Recovering/Resolving]
